FAERS Safety Report 9921059 (Version 1)
Quarter: 2014Q1

REPORT INFORMATION
  Report Type: Report from Study
  Country: CA (occurrence: CA)
  Receive Date: 20140225
  Receipt Date: 20140225
  Transmission Date: 20141002
  Serious: Yes (Other)
  Sender: FDA-Public Use
  Company Number: CA-BRISTOL-MYERS SQUIBB COMPANY-20301867

PATIENT
  Age: 64 Year
  Sex: Female

DRUGS (4)
  1. ORENCIA [Suspect]
     Indication: RHEUMATOID ARTHRITIS
     Dosage: 1DF=750 UNIT NOS.07MAR14 INFUSION WAS CANCELLED
     Dates: start: 201103
  2. METHOTREXATE [Concomitant]
  3. FOLIC ACID [Concomitant]
  4. ATASOL [Concomitant]

REACTIONS (1)
  - Bone disorder [Unknown]
